FAERS Safety Report 8770169 (Version 1)
Quarter: 2012Q4

REPORT INFORMATION
  Report Type: 
  Country: US (occurrence: US)
  Receive Date: 20120905
  Receipt Date: 20120905
  Transmission Date: 20130627
  Serious: Yes (Hospitalization, Other)
  Sender: FDA-Public Use
  Company Number: US-PAR PHARMACEUTICAL, INC-2012SCPR004601

PATIENT

DRUGS (3)
  1. LEVETIRACETAM [Suspect]
     Indication: CONVULSION
     Dosage: UNK, Unknown
     Route: 065
  2. PHENOBARBITAL [Suspect]
     Indication: CONVULSION
     Dosage: UNK, Unknown
     Route: 065
  3. PHENYTOIN [Suspect]
     Indication: CONVULSION
     Dosage: UNK, Unknown
     Route: 065

REACTIONS (1)
  - Hypothyroidism [Recovered/Resolved]
